FAERS Safety Report 5040310-0 (Version None)
Quarter: 2006Q2

REPORT INFORMATION
  Report Type: 
  Country: None (occurrence: None)
  Receive Date: 20060630
  Receipt Date: 20060425
  Transmission Date: 20061013
  Serious: No
  Sender: FDA-Public Use
  Company Number: US-BRISTOL-MYERS SQUIBB COMPANY-13356209

PATIENT
  Age: 45 Year
  Sex: Female
  Weight: 83 kg

DRUGS (17)
  1. ORENCIA [Suspect]
     Indication: RHEUMATOID ARTHRITIS
     Route: 042
  2. METHOTREXATE [Concomitant]
  3. AVINZA [Concomitant]
  4. B12 [Concomitant]
  5. BENICAR [Concomitant]
  6. CALCIUM + VITAMIN D [Concomitant]
  7. DURAGESIC-100 [Concomitant]
  8. FOLIC ACID [Concomitant]
  9. KLONOPIN [Concomitant]
  10. LASIX [Concomitant]
  11. LUNESTA [Concomitant]
  12. PLAQUENIL [Concomitant]
  13. POTASSIUM [Concomitant]
  14. PREDNISONE [Concomitant]
  15. PRILOSEC [Concomitant]
  16. TRILEPTAL [Concomitant]
  17. ULTRACET [Concomitant]

REACTIONS (1)
  - DEPRESSION [None]
